FAERS Safety Report 7776881-0 (Version None)
Quarter: 2011Q3

REPORT INFORMATION
  Report Type: 
  Country: None (occurrence: None)
  Receive Date: 20110923
  Receipt Date: 20110923
  Transmission Date: 20111222
  Serious: Yes (Hospitalization)
  Sender: FDA-Public Use
  Company Number: None

PATIENT
  Sex: Female
  Weight: 46.7 kg

DRUGS (3)
  1. CISPLATIN [Suspect]
     Dosage: 117 MG
  2. ETOPOSIDE [Suspect]
     Dosage: 450 MG
  3. LISINOPRIL [Concomitant]

REACTIONS (6)
  - FATIGUE [None]
  - DIZZINESS POSTURAL [None]
  - DEHYDRATION [None]
  - NAUSEA [None]
  - BALANCE DISORDER [None]
  - ASTHENIA [None]
